FAERS Safety Report 8424377-5 (Version None)
Quarter: 2012Q2

REPORT INFORMATION
  Report Type: 
  Country: None (occurrence: None)
  Receive Date: 20120608
  Receipt Date: 20111019
  Transmission Date: 20120825
  Serious: No
  Sender: FDA-Public Use
  Company Number: US-ASTRAZENECA-2011SE58191

PATIENT
  Age: 62 Year
  Sex: Female
  Weight: 56.7 kg

DRUGS (5)
  1. ALBUTEROL [Concomitant]
  2. THYROID [Concomitant]
  3. SINGULAIR [Concomitant]
  4. PULMICORT FLEXHALER [Suspect]
     Indication: ASTHMA
     Route: 055
     Dates: start: 20010101
  5. VERTEX [Concomitant]

REACTIONS (1)
  - DYSGEUSIA [None]
